FAERS Safety Report 7941705-5 (Version None)
Quarter: 2011Q4

REPORT INFORMATION
  Report Type: 
  Country: None (occurrence: None)
  Receive Date: 20111128
  Receipt Date: 20111128
  Transmission Date: 20120403
  Serious: Yes (Other)
  Sender: FDA-Public Use
  Company Number: None

PATIENT
  Age: 51 Year
  Sex: Female
  Weight: 86.182 kg

DRUGS (1)
  1. MAGNEVIST [Suspect]
     Indication: NUCLEAR MAGNETIC RESONANCE IMAGING
     Dosage: 17CC
     Route: 042
     Dates: start: 20080506, end: 20080506

REACTIONS (22)
  - CONTRAST MEDIA ALLERGY [None]
  - BURNING SENSATION [None]
  - EXERCISE TOLERANCE DECREASED [None]
  - ULCER HAEMORRHAGE [None]
  - FATIGUE [None]
  - ARTHRALGIA [None]
  - BONE PAIN [None]
  - SKIN LESION [None]
  - ADRENAL DISORDER [None]
  - NASAL ULCER [None]
  - HEPATIC PAIN [None]
  - SPEECH DISORDER [None]
  - RASH [None]
  - PRODUCT QUALITY ISSUE [None]
  - IDIOPATHIC THROMBOCYTOPENIC PURPURA [None]
  - COGNITIVE DISORDER [None]
  - IMPAIRED WORK ABILITY [None]
  - METAL POISONING [None]
  - LYMPHADENOPATHY [None]
  - MUSCULAR WEAKNESS [None]
  - HYPERHIDROSIS [None]
  - ALOPECIA [None]
